FAERS Safety Report 25443400 (Version 2)
Quarter: 2025Q2

REPORT INFORMATION
  Report Type: Spontaneous
  Country: US (occurrence: US)
  Receive Date: 20250617
  Receipt Date: 20250626
  Transmission Date: 20250716
  Serious: Yes (Life-Threatening, Hospitalization, Other)
  Sender: AUROBINDO
  Company Number: US-MLMSERVICE-20250521-PI513031-00044-1

PATIENT
  Age: 45 Year
  Sex: Male

DRUGS (4)
  1. ALPRAZOLAM [Suspect]
     Active Substance: ALPRAZOLAM
     Indication: Product used for unknown indication
     Route: 065
  2. 4-AMINO-3-PHENYLBUTYRIC ACID [Concomitant]
     Active Substance: 4-AMINO-3-PHENYLBUTYRIC ACID
     Indication: Behavioural therapy
     Route: 065
  3. DROMOSTANOLONE PROPIONATE [Concomitant]
     Active Substance: DROMOSTANOLONE PROPIONATE
     Indication: Product used for unknown indication
     Dosage: UNK, ONCE A DAY
     Route: 065
  4. MODAFINIL [Concomitant]
     Active Substance: MODAFINIL
     Indication: Product used for unknown indication
     Route: 065

REACTIONS (9)
  - Unresponsive to stimuli [Recovering/Resolving]
  - Lactic acidosis [Unknown]
  - Confusional state [Recovering/Resolving]
  - Lethargy [Recovering/Resolving]
  - Abnormal behaviour [Recovering/Resolving]
  - Hyponatraemia [Unknown]
  - Gait disturbance [Unknown]
  - Prescription drug used without a prescription [Unknown]
  - Drug use disorder [Recovered/Resolved]
